FAERS Safety Report 5713201-7 (Version None)
Quarter: 2008Q2

REPORT INFORMATION
  Report Type: 
  Country: None (occurrence: None)
  Receive Date: 20080422
  Receipt Date: 19960805
  Transmission Date: 20081010
  Serious: Yes (Death, Hospitalization, Other)
  Sender: FDA-Public Use
  Company Number: US-ROCHE-49103

PATIENT
  Sex: Male
  Weight: 63 kg

DRUGS (7)
  1. GANCICLOVIR SODIUM [Suspect]
     Route: 042
     Dates: start: 19950123, end: 19951219
  2. NIZORAL [Concomitant]
     Dates: start: 19950602, end: 19950707
  3. RIFABUTIN [Concomitant]
     Dates: start: 19940721
  4. FE SULFATE [Concomitant]
     Dates: start: 19940721
  5. KETOCONAZOLE [Concomitant]
     Dates: start: 19940804
  6. DICLOXACILLIN [Concomitant]
     Dates: start: 19950306
  7. COLACE [Concomitant]
     Dates: start: 19950419

REACTIONS (4)
  - DEATH [None]
  - GASTRITIS [None]
  - HISTOPLASMOSIS [None]
  - OESOPHAGITIS [None]
